FAERS Safety Report 4799991-9 (Version None)
Quarter: 2005Q4

REPORT INFORMATION
  Report Type: 
  Country: None (occurrence: None)
  Receive Date: 20051013
  Receipt Date: 20051013
  Transmission Date: 20060501
  Serious: Yes (Death)
  Sender: FDA-Public Use
  Company Number: None

PATIENT
  Age: 82 Year
  Sex: Female
  Weight: 45.3597 kg

DRUGS (1)
  1. NITROFURANTOIN [Suspect]
     Indication: CYSTITIS
     Dosage: 100 MG 2 TIMES PER DAY
     Dates: start: 20050926, end: 20050928

REACTIONS (9)
  - CHILLS [None]
  - CONDITION AGGRAVATED [None]
  - CYSTITIS [None]
  - DIARRHOEA [None]
  - DRUG PRESCRIBING ERROR [None]
  - PHARMACEUTICAL PRODUCT COMPLAINT [None]
  - TREMOR [None]
  - VOMITING [None]
  - WEIGHT DECREASED [None]
